FAERS Safety Report 10704631 (Version 2)
Quarter: 2015Q1

REPORT INFORMATION
  Report Type: Spontaneous
  Country: GB (occurrence: GB)
  Receive Date: 20150112
  Receipt Date: 20150115
  Transmission Date: 20150721
  Serious: Yes (Other)
  Sender: FDA-Public Use
  Company Number: GB-ABBVIE-15P-167-1330803-00

PATIENT
  Sex: Male

DRUGS (1)
  1. DUODOPA [Suspect]
     Active Substance: CARBIDOPA\LEVODOPA
     Indication: PRODUCT USED FOR UNKNOWN INDICATION
     Dosage: FLOW RATE CONTINUOUS
     Route: 050
     Dates: start: 20100628

REACTIONS (4)
  - Device issue [Unknown]
  - Device infusion issue [Unknown]
  - Akinesia [Unknown]
  - Device occlusion [Unknown]
